FAERS Safety Report 5273035-7 (Version None)
Quarter: 2007Q1

REPORT INFORMATION
  Report Type: 
  Country: None (occurrence: None)
  Receive Date: 20070322
  Receipt Date: 20070307
  Transmission Date: 20070707
  Serious: Yes (Other)
  Sender: FDA-Public Use
  Company Number: US-SHR-US-2006-040640

PATIENT
  Age: 60 Year
  Sex: Female
  Weight: 83.9 kg

DRUGS (5)
  1. BETASERON [Suspect]
     Dosage: 8 MIU, EVERY 2D
     Route: 058
     Dates: start: 19940101
  2. ASPIRIN [Concomitant]
     Dosage: 81 MG, 1X/DAY
     Dates: end: 20061201
  3. PAXIL [Concomitant]
     Dosage: 20 MG/D, UNK
     Route: 048
     Dates: start: 19970101
  4. ZOCOR [Concomitant]
     Dosage: 5 MG/D, UNK
     Route: 048
     Dates: start: 20030101
  5. MULTI-VITAMINS [Concomitant]

REACTIONS (3)
  - HAEMORRHAGE [None]
  - HIATUS HERNIA [None]
  - IRON DEFICIENCY ANAEMIA [None]
